FAERS Safety Report 4919828-4 (Version None)
Quarter: 2006Q1

REPORT INFORMATION
  Report Type: 
  Country: None (occurrence: None)
  Receive Date: 20060217
  Receipt Date: 20060206
  Transmission Date: 20060701
  Serious: Yes (Hospitalization)
  Sender: FDA-Public Use
  Company Number: 2006020110

PATIENT
  Age: 50 Year
  Sex: Male

DRUGS (4)
  1. ZITHROMAX [Suspect]
     Indication: NASOPHARYNGITIS
     Dosage: 500 MG, ORAL
     Route: 048
     Dates: start: 20060202, end: 20060202
  2. CALONAL (PARACETAMOL) [Suspect]
     Indication: ILL-DEFINED DISORDER
     Dates: start: 20060202
  3. LAC B (LACTOBACILLUS BIFIDUS, LYOPHILIZED) [Suspect]
     Indication: ILL-DEFINED DISORDER
     Dosage: ORAL
     Route: 048
     Dates: start: 20060202
  4. ALL OTHER THERAPEUTIC PRODUCTS (ALL OTHER THERAPEUTIC PRODUCTS) [Concomitant]

REACTIONS (4)
  - EROSIVE OESOPHAGITIS [None]
  - FAECES DISCOLOURED [None]
  - GASTRITIS EROSIVE [None]
  - HAEMATOCHEZIA [None]
